FAERS Safety Report 11938544 (Version 1)
Quarter: 2016Q1

REPORT INFORMATION
  Report Type: Spontaneous
  Country: US (occurrence: US)
  Receive Date: 20160122
  Receipt Date: 20160122
  Transmission Date: 20160526
  Serious: Yes (Hospitalization, Other)
  Sender: FDA-Public Use
  Company Number: US-WEST-WARD PHARMACEUTICALS CORP.-US-H14001-16-00111

PATIENT
  Age: 14 Year
  Sex: Male
  Weight: 56.74 kg

DRUGS (46)
  1. NALBUPHINE [Concomitant]
     Active Substance: NALBUPHINE
     Indication: URINARY RETENTION
     Route: 065
  2. ONDANSETRON [Concomitant]
     Active Substance: ONDANSETRON
     Indication: VOMITING
     Route: 042
     Dates: start: 20151113, end: 20151122
  3. OMEPRAZOLE. [Concomitant]
     Active Substance: OMEPRAZOLE
     Indication: GASTROOESOPHAGEAL REFLUX DISEASE
     Route: 048
     Dates: start: 20150729
  4. RANITIDINE [Concomitant]
     Active Substance: RANITIDINE\RANITIDINE HYDROCHLORIDE
     Indication: GASTROOESOPHAGEAL REFLUX DISEASE
     Route: 048
     Dates: start: 20150817
  5. LEVOFLOXACIN. [Concomitant]
     Active Substance: LEVOFLOXACIN
     Indication: INFECTION PROPHYLAXIS
     Route: 048
     Dates: start: 20151114
  6. SIMETHICONE (DIMETHICONE) [Concomitant]
     Active Substance: DIMETHICONE
     Indication: PRODUCT USED FOR UNKNOWN INDICATION
     Route: 048
  7. MIRTAZAPINE. [Concomitant]
     Active Substance: MIRTAZAPINE
     Route: 048
     Dates: start: 20151114, end: 20151120
  8. BISACODYL. [Concomitant]
     Active Substance: BISACODYL
     Indication: CONSTIPATION
     Route: 048
     Dates: start: 20151104
  9. OXYCODONE [Concomitant]
     Active Substance: OXYCODONE
     Indication: PAIN
     Route: 048
     Dates: start: 20151112
  10. COTRIMOXAZOLE [Concomitant]
     Active Substance: SULFAMETHOXAZOLE\TRIMETHOPRIM
     Route: 048
     Dates: start: 20151116, end: 20151117
  11. DRONABINOL. [Concomitant]
     Active Substance: DRONABINOL
     Indication: PRODUCT USED FOR UNKNOWN INDICATION
     Route: 048
     Dates: start: 20151028
  12. BLOOD TRANSUSIONS [Concomitant]
     Indication: ANAEMIA
     Route: 065
  13. TEMSIROLIMUS [Suspect]
     Active Substance: TEMSIROLIMUS
     Indication: CHEMOTHERAPY
     Route: 065
     Dates: start: 20151115, end: 20151115
  14. BISACODYL. [Concomitant]
     Active Substance: BISACODYL
     Route: 048
     Dates: start: 20151113, end: 20151121
  15. LIDOCAIN [Concomitant]
     Active Substance: LIDOCAINE
     Indication: PAIN
     Route: 023
     Dates: start: 20151112, end: 20151112
  16. LORAZEPAM. [Concomitant]
     Active Substance: LORAZEPAM
     Indication: ANXIETY
     Route: 042
     Dates: start: 20151113, end: 20151122
  17. CHLORHEXIDINE [Concomitant]
     Active Substance: CHLORHEXIDINE
     Indication: INFECTION PROPHYLAXIS
     Route: 048
     Dates: start: 20151119, end: 20151122
  18. INOTUZUMAB OZOGAMICIN [Suspect]
     Active Substance: INOTUZUMAB OZOGAMICIN
     Indication: CHEMOTHERAPY
     Route: 065
     Dates: start: 20151016, end: 20151030
  19. MIRTAZAPINE. [Concomitant]
     Active Substance: MIRTAZAPINE
     Indication: ANXIETY
     Route: 048
     Dates: start: 20150909
  20. CHOLECALCIFEROL [Concomitant]
     Active Substance: CHOLECALCIFEROL
     Indication: PRODUCT USED FOR UNKNOWN INDICATION
     Route: 048
     Dates: start: 20151020
  21. CHOLECALCIFEROL [Concomitant]
     Active Substance: CHOLECALCIFEROL
     Route: 048
     Dates: start: 20151114, end: 20151122
  22. ALLOPURINOL. [Concomitant]
     Active Substance: ALLOPURINOL
     Indication: PROPHYLAXIS
     Route: 048
     Dates: start: 20151113
  23. OLANZAPINE. [Concomitant]
     Active Substance: OLANZAPINE
     Route: 048
     Dates: start: 20151122
  24. CASPOFUNGIN [Concomitant]
     Active Substance: CASPOFUNGIN
     Indication: ANTIFUNGAL PROPHYLAXIS
     Route: 042
     Dates: start: 20151114, end: 20151122
  25. TEMSIROLIMUS [Suspect]
     Active Substance: TEMSIROLIMUS
     Route: 065
     Dates: start: 20151115, end: 20151121
  26. ONDANSETRON [Concomitant]
     Active Substance: ONDANSETRON
     Indication: NAUSEA
     Route: 048
     Dates: start: 20150708
  27. CITRAZINE [Concomitant]
     Route: 048
     Dates: start: 20151114, end: 20151122
  28. BIOTIN [Concomitant]
     Active Substance: BIOTIN
     Indication: PRODUCT USED FOR UNKNOWN INDICATION
     Route: 048
     Dates: start: 20151104
  29. HYDROMORPHONE [Concomitant]
     Active Substance: HYDROMORPHONE
     Indication: PAIN
     Route: 042
     Dates: start: 20151112
  30. HYDROMORPHONE [Concomitant]
     Active Substance: HYDROMORPHONE
     Route: 048
     Dates: start: 20151113
  31. CALCIUM CARBONATE. [Concomitant]
     Active Substance: CALCIUM CARBONATE
     Indication: MINERAL SUPPLEMENTATION
     Route: 048
     Dates: start: 20151116
  32. ZINC [Concomitant]
     Active Substance: ZINC\ZINC CHLORIDE
     Indication: PRODUCT USED FOR UNKNOWN INDICATION
     Route: 048
  33. ETOPOSIDE. [Suspect]
     Active Substance: ETOPOSIDE
     Indication: CHEMOTHERAPY
     Route: 065
     Dates: start: 20151114, end: 20151118
  34. CYCLOPHOSPHAMIDE. [Suspect]
     Active Substance: CYCLOPHOSPHAMIDE
     Indication: CHEMOTHERAPY
     Route: 065
     Dates: start: 20151114, end: 20151118
  35. RANITIDINE [Concomitant]
     Active Substance: RANITIDINE\RANITIDINE HYDROCHLORIDE
     Route: 048
     Dates: start: 20151113, end: 20151122
  36. SCOPOLAMINE [Concomitant]
     Active Substance: SCOPOLAMINE
     Indication: VOMITING
     Route: 062
     Dates: start: 20151124
  37. DOCUSATE [Concomitant]
     Active Substance: DOCUSATE
     Indication: CONSTIPATION
     Route: 048
     Dates: start: 20141230
  38. LORAZEPAM. [Concomitant]
     Active Substance: LORAZEPAM
     Route: 042
     Dates: start: 20151122
  39. OLANZAPINE. [Concomitant]
     Active Substance: OLANZAPINE
     Indication: ANXIETY
     Route: 048
     Dates: start: 20151113, end: 20151121
  40. ZINC GLUCONATE [Concomitant]
     Active Substance: ZINC GLUCONATE
     Indication: PRODUCT USED FOR UNKNOWN INDICATION
     Route: 048
     Dates: start: 20151114, end: 20151121
  41. COTRIMOXAZOLE [Concomitant]
     Active Substance: SULFAMETHOXAZOLE\TRIMETHOPRIM
     Indication: INFECTION PROPHYLAXIS
     Route: 048
     Dates: start: 20150117
  42. OMEPRAZOLE. [Concomitant]
     Active Substance: OMEPRAZOLE
     Route: 048
     Dates: start: 20151114, end: 20151122
  43. CITRAZINE [Concomitant]
     Indication: ANTIALLERGIC THERAPY
     Route: 048
     Dates: start: 20151001
  44. BIOTIN [Concomitant]
     Active Substance: BIOTIN
     Route: 048
     Dates: start: 20151113
  45. SCOPOLAMINE [Concomitant]
     Active Substance: SCOPOLAMINE
     Indication: NAUSEA
     Route: 062
     Dates: start: 20151112, end: 20151122
  46. DOCUSATE [Concomitant]
     Active Substance: DOCUSATE
     Route: 048
     Dates: start: 20151113, end: 20151122

REACTIONS (18)
  - Hyperglycaemia [Not Recovered/Not Resolved]
  - Gallbladder disorder [Unknown]
  - Fatigue [Unknown]
  - Condition aggravated [Not Recovered/Not Resolved]
  - Hepatomegaly [Unknown]
  - Headache [Recovered/Resolved]
  - Ascites [Unknown]
  - Anaemia [Recovered/Resolved]
  - Epistaxis [Not Recovered/Not Resolved]
  - Nausea [Unknown]
  - Febrile neutropenia [Recovering/Resolving]
  - Hypokalaemia [Recovered/Resolved]
  - Hyponatraemia [Unknown]
  - Hypotension [Unknown]
  - Lymphocyte count decreased [Not Recovered/Not Resolved]
  - White blood cell count decreased [Not Recovered/Not Resolved]
  - Abdominal pain upper [Recovering/Resolving]
  - Hyperaemia [Unknown]

NARRATIVE: CASE EVENT DATE: 2015
